FAERS Safety Report 10213829 (Version 1)
Quarter: 2014Q2

REPORT INFORMATION
  Report Type: Spontaneous
  Country: US (occurrence: None)
  Receive Date: 20140530
  Receipt Date: 20140530
  Transmission Date: 20141212
  Serious: Yes (Life-Threatening, Hospitalization, Disabling)
  Sender: FDA-Public Use
  Company Number: 2014P1004583

PATIENT
  Age: 35 Year
  Sex: Female

DRUGS (1)
  1. LITHIUM [Suspect]

REACTIONS (13)
  - Neurotoxicity [None]
  - Suicide attempt [None]
  - Confusional state [None]
  - Choreoathetosis [None]
  - Dysarthria [None]
  - Haemodialysis [None]
  - Encephalopathy [None]
  - Cerebellar syndrome [None]
  - Ataxia [None]
  - Cerebellar syndrome [None]
  - Nystagmus [None]
  - Romberg test positive [None]
  - Cognitive disorder [None]
